FAERS Safety Report 20433367 (Version 1)
Quarter: 2022Q1

REPORT INFORMATION
  Report Type: Spontaneous
  Country: US (occurrence: US)
  Receive Date: 20220205
  Receipt Date: 20220205
  Transmission Date: 20220424
  Serious: Yes (Death, Other)
  Sender: FDA-Public Use
  Company Number: US-PBT-004301

PATIENT
  Age: 7 Year
  Sex: Female

DRUGS (3)
  1. TACROLIMUS [Suspect]
     Active Substance: TACROLIMUS
     Indication: Prophylaxis against graft versus host disease
     Dosage: 0.015 MG/KG/DOSE IV EVERY 12 H, STARTING ON DAY +5
     Route: 042
  2. MYCOPHENOLATE MOFETIL [Suspect]
     Active Substance: MYCOPHENOLATE MOFETIL
     Indication: Prophylaxis against graft versus host disease
     Dosage: 15 MG/KG/DOSE IV OR BY MOUTH TID, STARTING ON DAY +5,
     Route: 065
  3. GRANULOCYTE COLONY-STIMULATING FACTOR NOS [Concomitant]
     Active Substance: GRANULOCYTE COLONY-STIMULATING FACTOR NOS
     Indication: Supportive care
     Dosage: STARTED ON DAY +5,
     Route: 042

REACTIONS (5)
  - Cytomegalovirus infection [Unknown]
  - Adenovirus infection [Unknown]
  - Transplant failure [Fatal]
  - Multiple organ dysfunction syndrome [Fatal]
  - Product use in unapproved indication [Unknown]
